FAERS Safety Report 17913724 (Version 2)
Quarter: 2020Q3

REPORT INFORMATION
  Report Type: Report from Study
  Country: GB (occurrence: GB)
  Receive Date: 20200618
  Receipt Date: 20200923
  Transmission Date: 20201103
  Serious: Yes (Other)
  Sender: FDA-Public Use
  Company Number: NVSC2019GB011650

PATIENT
  Sex: Male

DRUGS (2)
  1. METHOTREXATE. [Suspect]
     Active Substance: METHOTREXATE
     Indication: PRODUCT USED FOR UNKNOWN INDICATION
     Dosage: UNK
     Route: 065
  2. HYRIMOZ [Suspect]
     Active Substance: ADALIMUMAB-ADAZ
     Indication: RHEUMATOID ARTHRITIS
     Dosage: 1 DF, Q2W
     Route: 058
     Dates: start: 20190724

REACTIONS (3)
  - Rheumatoid arthritis [Unknown]
  - Joint swelling [Unknown]
  - Arthralgia [Unknown]
